FAERS Safety Report 7382227-2 (Version None)
Quarter: 2011Q1

REPORT INFORMATION
  Report Type: 
  Country: None (occurrence: None)
  Receive Date: 20110329
  Receipt Date: 20110114
  Transmission Date: 20110831
  Serious: No
  Sender: FDA-Public Use
  Company Number: US-BAYER-2011-005246

PATIENT
  Sex: Male
  Weight: 119 kg

DRUGS (4)
  1. PERCOCET [Concomitant]
  2. ALEVE [Suspect]
     Dosage: TOOK 1 GEL CAP IN THE MORNING AND 1 IN THE EVENING, BOTTLE COUNT 80S
     Route: 048
  3. ALEVE [Suspect]
     Dosage: 2 DF, ONCE, BOTTLE COUNT 80S
     Route: 048
     Dates: start: 20110114, end: 20110114
  4. ALEVE [Suspect]
     Indication: BACK PAIN
     Dosage: TOOK 2 GEL CAPS IN THE MORNING AND 1 IN THE EVENING, BOTTLE COUNT 80S
     Route: 048
     Dates: start: 20100101

REACTIONS (1)
  - NO ADVERSE EVENT [None]
